FAERS Safety Report 14577597 (Version 1)
Quarter: 2018Q1

REPORT INFORMATION
  Report Type: Spontaneous
  Country: AU (occurrence: AU)
  Receive Date: 20180227
  Receipt Date: 20180227
  Transmission Date: 20180509
  Serious: Yes (Other)
  Sender: FDA-Public Use
  Company Number: AU-ACTELION-A-CH2018-168241

PATIENT
  Age: 44 Year
  Sex: Female

DRUGS (2)
  1. TRACLEER [Suspect]
     Active Substance: BOSENTAN
     Indication: RIGHT-TO-LEFT CARDIAC SHUNT
     Dosage: 125 MG, BID
     Route: 048
     Dates: start: 20161204, end: 201709
  2. SILDENAFIL. [Suspect]
     Active Substance: SILDENAFIL
     Indication: RIGHT-TO-LEFT CARDIAC SHUNT
     Dosage: 75 MG, TID
     Route: 048
     Dates: start: 20111102, end: 201709

REACTIONS (1)
  - Transplant [Unknown]

NARRATIVE: CASE EVENT DATE: 2017
